FAERS Safety Report 24004236 (Version 1)
Quarter: 2024Q2

REPORT INFORMATION
  Report Type: Spontaneous
  Country: US (occurrence: US)
  Receive Date: 20240624
  Receipt Date: 20240624
  Transmission Date: 20240716
  Serious: No
  Sender: FDA-Public Use
  Company Number: US-ROCHE-3554231

PATIENT
  Age: 52 Year
  Sex: Female
  Weight: 68.04 kg

DRUGS (6)
  1. XOLAIR [Suspect]
     Active Substance: OMALIZUMAB
     Indication: Asthma
     Dosage: 2 OF 150MG PRE-FILLED SYRINGES
     Route: 058
     Dates: start: 20240424
  2. XOLAIR [Suspect]
     Active Substance: OMALIZUMAB
     Dosage: 2 OF 150MG PRE-FILLED SYRINGES
     Route: 058
     Dates: start: 202401
  3. XOLAIR [Suspect]
     Active Substance: OMALIZUMAB
     Dosage: 2 OF 150MG PRE-FILLED SYRINGES
     Route: 058
  4. TRELEGY ELLIPTA [Concomitant]
     Active Substance: FLUTICASONE FUROATE\UMECLIDINIUM BROMIDE\VILANTEROL TRIFENATATE
  5. SINGULAIR [Concomitant]
     Active Substance: MONTELUKAST SODIUM
  6. ALBUTEROL [Concomitant]
     Active Substance: ALBUTEROL

REACTIONS (4)
  - Accidental exposure to product [Unknown]
  - Underdose [Unknown]
  - No adverse event [Unknown]
  - Device defective [Unknown]

NARRATIVE: CASE EVENT DATE: 20240424
